FAERS Safety Report 12352886 (Version 2)
Quarter: 2016Q2

REPORT INFORMATION
  Report Type: Spontaneous
  Country: US (occurrence: US)
  Receive Date: 20160510
  Receipt Date: 20160610
  Transmission Date: 20160815
  Serious: Yes (Other)
  Sender: FDA-Public Use
  Company Number: US-MDT-ADR-2016-00495

PATIENT
  Age: 38 Year
  Sex: Male

DRUGS (14)
  1. MONTELUKAST [Suspect]
     Active Substance: MONTELUKAST SODIUM
     Route: 048
  2. ADVIL PM [Suspect]
     Active Substance: DIPHENHYDRAMINE CITRATE\IBUPROFEN
     Route: 048
  3. SIMVASTATIN. [Suspect]
     Active Substance: SIMVASTATIN
     Route: 048
  4. LIORESAL [Suspect]
     Active Substance: BACLOFEN
     Dosage: 134.3 MCG/DAY.
     Route: 037
     Dates: start: 20150819
  5. AZELASTINE [Suspect]
     Active Substance: AZELASTINE
     Dosage: 137 MCG
     Route: 045
  6. LEVOTHYROXINE. [Suspect]
     Active Substance: LEVOTHYROXINE
     Route: 048
  7. EPIPEN [Suspect]
     Active Substance: EPINEPHRINE
  8. LIORESAL [Suspect]
     Active Substance: BACLOFEN
     Dosage: 122.12 MCG/DAY
     Route: 037
  9. LORATADINE. [Suspect]
     Active Substance: LORATADINE
     Dosage: ONE TABLET AS NEEDED
     Route: 048
  10. GABAPENTIN. [Suspect]
     Active Substance: GABAPENTIN
     Route: 048
  11. ALBUTEROL. [Suspect]
     Active Substance: ALBUTEROL
     Dosage: 90 MCG/ACTUATLON
     Route: 055
  12. CITALOPRAM [Suspect]
     Active Substance: CITALOPRAM HYDROBROMIDE
     Route: 048
  13. FLUTICASONE [Suspect]
     Active Substance: FLUTICASONE\FLUTICASONE PROPIONATE
     Dosage: 50 MCG/ACTUATION
     Route: 045
  14. NORCO [Suspect]
     Active Substance: ACETAMINOPHEN\HYDROCODONE BITARTRATE
     Dosage: 5-325 MG
     Route: 048

REACTIONS (3)
  - Pain in extremity [Recovered/Resolved]
  - Hypertonia [Recovered/Resolved]
  - Muscle spasms [Recovered/Resolved]

NARRATIVE: CASE EVENT DATE: 201508
